FAERS Safety Report 9476293 (Version 1)
Quarter: 2013Q3

REPORT INFORMATION
  Report Type: Spontaneous
  Country: US (occurrence: US)
  Receive Date: 20130826
  Receipt Date: 20130826
  Transmission Date: 20140515
  Serious: Yes (Other)
  Sender: FDA-Public Use
  Company Number: US-JNJFOC-20130808846

PATIENT
  Age: 7 Year
  Sex: Male

DRUGS (7)
  1. DOXORUBICIN HYDROCHLORIDE [Suspect]
     Indication: INFLAMMATORY MYOFIBROBLASTIC TUMOUR
     Route: 042
  2. VINCRISTINE [Suspect]
     Indication: INFLAMMATORY MYOFIBROBLASTIC TUMOUR
     Route: 065
  3. IFOSFAMIDE [Suspect]
     Indication: INFLAMMATORY MYOFIBROBLASTIC TUMOUR
     Route: 065
  4. CELECOXIB [Suspect]
     Indication: INFLAMMATORY MYOFIBROBLASTIC TUMOUR
     Dosage: FROM START OF THE SALVAGE TREATMENT UNTIL 3 AND A HALF YEARS AFTER COMPLETION OF SALVAGE THERAPY
     Route: 048
  5. GRANULOCYTE COLONY STIMULATING FACTOR [Concomitant]
     Indication: PROPHYLAXIS
     Route: 065
  6. MESNA [Concomitant]
     Indication: PROPHYLAXIS
     Route: 065
  7. DEXRAZOXANE [Concomitant]
     Indication: CARDIOVASCULAR EVENT PROPHYLAXIS
     Route: 065

REACTIONS (5)
  - Pancytopenia [Recovered/Resolved]
  - Staphylococcal infection [Recovered/Resolved]
  - Pyrexia [Recovered/Resolved]
  - Mucosal inflammation [Recovered/Resolved]
  - Off label use [Unknown]
